FAERS Safety Report 5132653-7 (Version None)
Quarter: 2006Q4

REPORT INFORMATION
  Report Type: 
  Country: None (occurrence: None)
  Receive Date: 20061017
  Receipt Date: 20061006
  Transmission Date: 20070319
  Serious: Yes (Hospitalization)
  Sender: FDA-Public Use
  Company Number: 2006-02606

PATIENT
  Age: 56 Year
  Sex: Female
  Weight: 52 kg

DRUGS (8)
  1. VELCADE [Suspect]
     Indication: T-CELL LYMPHOMA
     Dosage: 2.30 MG, INTRAVENOUS
     Route: 042
     Dates: start: 20060614, end: 20060712
  2. CYCLOPHOSPHAMIDE [Suspect]
     Indication: T-CELL LYMPHOMA
     Dosage: 1900.00 MG, INTRAVENOUS
     Route: 042
     Dates: start: 20060614, end: 20060729
  3. DOXIL [Suspect]
     Indication: T-CELL LYMPHOMA
     Dosage: 120.00 MG, INTRAVENOUS
     Route: 042
     Dates: start: 20060614, end: 20060712
  4. VINDESINE                    (VINDESINE) [Suspect]
     Indication: T-CELL LYMPHOMA
     Dosage: 3.00 MG, INTRAVENOUS
     Route: 042
     Dates: start: 20060614, end: 20060712
  5. BLEOMYCIN [Suspect]
     Indication: T-CELL LYMPHOMA
     Dosage: 10.00 MG, INTRAVENOUS
     Route: 042
     Dates: start: 20060614, end: 20060803
  6. LENOGRASTIM                               (LENOGRASTIM) [Suspect]
     Indication: T-CELL LYMPHOMA
     Dosage: 340.00 UG, SUBCUTANEOUS
     Route: 058
     Dates: start: 20060619, end: 20060811
  7. METHOTREXATE SODIUM [Suspect]
     Indication: T-CELL LYMPHOMA
     Dosage: SEE IMAGE
     Route: 042
     Dates: start: 20060615, end: 20060713
  8. METHOTREXATE SODIUM [Suspect]
     Indication: T-CELL LYMPHOMA
     Dosage: SEE IMAGE
     Route: 042
     Dates: start: 20060826, end: 20060916

REACTIONS (3)
  - BACTERIA STOOL IDENTIFIED [None]
  - CYTOMEGALOVIRUS INFECTION [None]
  - ESCHERICHIA INFECTION [None]
